FAERS Safety Report 7132657-9 (Version None)
Quarter: 2010Q4

REPORT INFORMATION
  Report Type: 
  Country: None (occurrence: None)
  Receive Date: 20101130
  Receipt Date: 20101130
  Transmission Date: 20110411
  Serious: Yes (Other)
  Sender: FDA-Public Use
  Company Number: None

PATIENT
  Age: 48 Year
  Sex: Female
  Weight: 53.5244 kg

DRUGS (6)
  1. NUCYNTA [Suspect]
     Indication: BACK PAIN
     Dosage: 50 MG 4 TIMES DAILY PO
     Route: 048
     Dates: start: 20090825, end: 20101122
  2. NUCYNTA [Suspect]
     Indication: DIABETIC NEUROPATHY
     Dosage: 50 MG 4 TIMES DAILY PO
     Route: 048
     Dates: start: 20090825, end: 20101122
  3. NUCYNTA [Suspect]
     Indication: PAIN
     Dosage: 50 MG 4 TIMES DAILY PO
     Route: 048
     Dates: start: 20090825, end: 20101122
  4. MEDTRONIC INSULIN PUMP [Concomitant]
  5. PARADIGM [Concomitant]
  6. RESPIRONICS CPAP [Concomitant]

REACTIONS (5)
  - BALANCE DISORDER [None]
  - DIABETES MELLITUS INADEQUATE CONTROL [None]
  - DIABETIC KETOACIDOSIS [None]
  - SEROTONIN SYNDROME [None]
  - TREMOR [None]
